FAERS Safety Report 16566097 (Version 1)
Quarter: 2019Q3

REPORT INFORMATION
  Report Type: Spontaneous
  Country: JP (occurrence: JP)
  Receive Date: 20190712
  Receipt Date: 20190712
  Transmission Date: 20191004
  Serious: Yes (Hospitalization, Other)
  Sender: FDA-Public Use
  Company Number: PHHY2017JP064199

PATIENT
  Age: 44 Year
  Sex: Male

DRUGS (4)
  1. EDARAVONE [Suspect]
     Active Substance: EDARAVONE
     Indication: VERTEBRAL ARTERY DISSECTION
     Dosage: UNK
     Route: 065
  2. SLONNON [Suspect]
     Active Substance: ARGATROBAN
     Indication: VERTEBRAL ARTERY DISSECTION
     Dosage: UNK
     Route: 065
  3. CLOPIDOGREL BISULFATE. [Suspect]
     Active Substance: CLOPIDOGREL BISULFATE
     Indication: VERTEBRAL ARTERY DISSECTION
     Dosage: 75 MG, QD
     Route: 048
  4. NIFEDIPINE. [Suspect]
     Active Substance: NIFEDIPINE
     Indication: HYPERTENSION
     Dosage: UNK
     Route: 065

REACTIONS (3)
  - Condition aggravated [Recovering/Resolving]
  - Vertebral artery dissection [Recovering/Resolving]
  - Brain stem infarction [Unknown]
